FAERS Safety Report 26178742 (Version 1)
Quarter: 2025Q4

REPORT INFORMATION
  Report Type: Spontaneous
  Country: US (occurrence: US)
  Receive Date: 20251219
  Receipt Date: 20251219
  Transmission Date: 20260117
  Serious: No
  Sender: BRISTOL-MYERS SQUIBB COMPANY
  Company Number: US-BRISTOL-MYERS SQUIBB COMPANY-2025-169669

PATIENT
  Age: 86 Year
  Sex: Male
  Weight: 95.25 kg

DRUGS (19)
  1. ELIQUIS [Suspect]
     Active Substance: APIXABAN
     Indication: Product used for unknown indication
     Route: 048
  2. VYNDAMAX [Suspect]
     Active Substance: TAFAMIDIS
     Indication: Cardiac amyloidosis
     Route: 048
     Dates: start: 20250821, end: 20250915
  3. ACETAMINOPHEN [Concomitant]
     Active Substance: ACETAMINOPHEN
     Indication: Product used for unknown indication
     Dosage: AS NEEDED.
     Route: 048
  4. albuterol (VENTOLIN) [Concomitant]
     Indication: Bronchospasm
     Dosage: 108 (90 BASE) MCG/ACT HFA INHALER, TAKE 2 PUFFS BY INHALATION EVERY 4 HOURS AS NEEDED.
  5. albuterol (VENTOLIN) [Concomitant]
     Indication: Wheezing
     Dosage: (2.5 MG/3 ML) 0.083%, TAKE 3 ML BY INHALATION EVERY 4 HOURS AS NEEDED FOR BRONCHOSPASM, WHEEZING OR SHORTNESS OF BREATH.
  6. albuterol (VENTOLIN) [Concomitant]
     Indication: Dyspnoea
  7. ZYLOPRIM [Concomitant]
     Active Substance: ALLOPURINOL
     Indication: Product used for unknown indication
     Dosage: AFTER MEAL
     Route: 048
  8. NORVASC [Concomitant]
     Active Substance: AMLODIPINE BESYLATE
     Indication: Product used for unknown indication
     Dosage: TAKE 2.5 MG BY MOUTH AT BEDTIME.
     Route: 048
  9. NORVASC [Concomitant]
     Active Substance: AMLODIPINE BESYLATE
     Route: 048
  10. TENORMIN [Concomitant]
     Active Substance: ATENOLOL
     Indication: Product used for unknown indication
     Dosage: TAKE 25 MG BY MOUTH DAILY.
     Route: 048
  11. bumetanide (BUMEX) [Concomitant]
     Indication: Product used for unknown indication
     Dosage: TAKE 1 MG BY MOUTH TWICE DAILY.
     Route: 048
  12. ROCALTROL [Concomitant]
     Active Substance: CALCITRIOL
     Indication: Product used for unknown indication
     Dosage: TAKE 1 CAP BY MOUTH MONDAY, WEDNESDAY, FRIDAY.
     Route: 048
  13. SENSIPAR [Concomitant]
     Active Substance: CINACALCET HYDROCHLORIDE
     Indication: Product used for unknown indication
     Dosage: TAKE 1 TAB BY MOUTH MONDAY, WEDNESDAY, FRIDAY.
     Route: 048
  14. JARDIANCE [Concomitant]
     Active Substance: EMPAGLIFLOZIN
     Indication: Product used for unknown indication
     Dosage: TAKE 25 MG BY MOUTH DAILY.
     Route: 048
  15. NEURONTIN [Concomitant]
     Active Substance: GABAPENTIN
     Indication: Product used for unknown indication
     Dosage: TAKE 1 CAP BY MOUTH AT BEDTIME.
     Route: 048
  16. METRONIDAZOLE [Concomitant]
     Active Substance: METRONIDAZOLE
     Indication: Product used for unknown indication
     Dosage: TAKE BY MOUTH.
     Route: 048
  17. MICONAZOLE NITRATE [Concomitant]
     Active Substance: MICONAZOLE NITRATE
     Indication: Product used for unknown indication
     Dosage: 2% TOPICAL SOLUTION APPLY 1 APPLICATION TO AFFECTED AREA TWICE DAILY.
  18. PROTONIX [Concomitant]
     Active Substance: PANTOPRAZOLE SODIUM
     Indication: Product used for unknown indication
     Dosage: TAKE 40 MG BY MOUTH DAILY IN THE EARLY MORNING/BEFORE MEALS.
     Route: 048
  19. tiotropium (SPIRIVA RESPIMAT) [Concomitant]
     Indication: Product used for unknown indication
     Dosage: TAKE 2 PUFFS BY INHALATION DAILY.
     Route: 055

REACTIONS (4)
  - Urine odour abnormal [Unknown]
  - Abdominal distension [Unknown]
  - Weight increased [Unknown]
  - Dyspnoea [Unknown]

NARRATIVE: CASE EVENT DATE: 20250915
